FAERS Safety Report 21751167 (Version 1)
Quarter: 2022Q4

REPORT INFORMATION
  Report Type: Spontaneous
  Country: ES (occurrence: ES)
  Receive Date: 20221220
  Receipt Date: 20221220
  Transmission Date: 20230112
  Serious: Yes (Hospitalization)
  Sender: FDA-Public Use
  Company Number: ES-AEMPS-1295528

PATIENT
  Age: 61 Year
  Sex: Female

DRUGS (5)
  1. OXALIPLATIN [Suspect]
     Active Substance: OXALIPLATIN
     Indication: Adenocarcinoma of colon
     Dosage: UNK
     Route: 065
     Dates: start: 20220425, end: 20220425
  2. CAPECITABINE [Suspect]
     Active Substance: CAPECITABINE
     Indication: Adenocarcinoma of colon
     Dosage: 1800.0 MG C/12 H
     Route: 048
     Dates: start: 20220425
  3. PROTEINA (SIN ESPECIFICAR) [Concomitant]
     Indication: Adenocarcinoma of colon
     Dosage: UNK
     Route: 048
     Dates: start: 20220719
  4. ONDANSETRON NORMON 4 mg [Concomitant]
     Indication: Adenocarcinoma of colon
     Dosage: 4.0 MG C/12 H
     Route: 048
     Dates: start: 20220429
  5. ENOXAPARINA ROVI 10.000 UI [Concomitant]
     Indication: Adenocarcinoma of colon
     Dosage: 100.0 MG A-CE
     Route: 058
     Dates: start: 20220923

REACTIONS (3)
  - Asthenia [Recovered/Resolved]
  - Nausea [Recovered/Resolved]
  - Diarrhoea [Recovered/Resolved]

NARRATIVE: CASE EVENT DATE: 20220510
